FAERS Safety Report 6759680-8 (Version None)
Quarter: 2010Q2

REPORT INFORMATION
  Report Type: 
  Country: None (occurrence: None)
  Receive Date: 20100603
  Receipt Date: 20100527
  Transmission Date: 20101027
  Serious: Yes (Hospitalization)
  Sender: FDA-Public Use
  Company Number: 2009S1000420-002

PATIENT
  Age: 71 Year
  Sex: Male

DRUGS (6)
  1. LIVALO [Suspect]
  2. PITAVASTATIN CALCIUM [Concomitant]
  3. CANDESARTAN CILEXETIL [Concomitant]
  4. AMLODIPINE BESYLATE [Concomitant]
  5. METFORMIN HYDROCHLORIDE [Concomitant]
  6. GLICLAZIDE [Concomitant]

REACTIONS (1)
  - VERTIGO [None]
